FAERS Safety Report 8390724-6 (Version None)
Quarter: 2012Q2

REPORT INFORMATION
  Report Type: 
  Country: None (occurrence: None)
  Receive Date: 20120529
  Receipt Date: 20120515
  Transmission Date: 20120825
  Serious: Yes (Hospitalization)
  Sender: FDA-Public Use
  Company Number: US-JNJFOC-20120503707

PATIENT
  Sex: Female
  Weight: 36 kg

DRUGS (7)
  1. ALL OTHER THERAPEUTIC PRODUCTS [Concomitant]
  2. REMICADE [Suspect]
     Indication: INFLAMMATORY BOWEL DISEASE
     Route: 042
     Dates: start: 20120409
  3. LOVAZA [Concomitant]
  4. MESALAMINE [Concomitant]
     Route: 048
  5. PROBIOTICS [Concomitant]
  6. PREDNISONE [Concomitant]
  7. VITAMIN D [Concomitant]

REACTIONS (1)
  - ABDOMINAL PAIN [None]
